FAERS Safety Report 6068310-2 (Version None)
Quarter: 2009Q1

REPORT INFORMATION
  Report Type: 
  Country: None (occurrence: None)
  Receive Date: 20090206
  Receipt Date: 20090203
  Transmission Date: 20090719
  Serious: Yes (Death, Other)
  Sender: FDA-Public Use
  Company Number: PHBS2009JP00673

PATIENT
  Age: 52 Year
  Sex: Male

DRUGS (11)
  1. CYCLOSPORINE [Suspect]
     Indication: CORD BLOOD TRANSPLANT THERAPY
     Dosage: 3 MG/KG
     Route: 042
  2. FLUDARABINE PHOSPHATE [Suspect]
     Dosage: 125 MG/M2
  3. L-PAM [Suspect]
     Dosage: 80 MG/M2
  4. IRRADIATION [Concomitant]
  5. ALLOPURINOL [Concomitant]
  6. CEFEPIME [Concomitant]
  7. ISEPAMICIN [Concomitant]
  8. FUROSEMIDE [Concomitant]
  9. MEROPENEM [Concomitant]
  10. MICAFUNGIN [Concomitant]
  11. ALBUMIN (HUMAN) [Concomitant]

REACTIONS (7)
  - DEPRESSED LEVEL OF CONSCIOUSNESS [None]
  - HAEMODIALYSIS [None]
  - HEPATIC FAILURE [None]
  - IMMUNOSUPPRESSANT DRUG LEVEL INCREASED [None]
  - PYREXIA [None]
  - RENAL IMPAIRMENT [None]
  - TOXIC ENCEPHALOPATHY [None]
